FAERS Safety Report 5335356-9 (Version None)
Quarter: 2007Q2

REPORT INFORMATION
  Report Type: 
  Country: None (occurrence: None)
  Receive Date: 20070321
  Receipt Date: 20060207
  Transmission Date: 20071010
  Serious: No
  Sender: FDA-Public Use
  Company Number: 02100-USA-06-0002

PATIENT
  Age: 70 Year
  Sex: Female

DRUGS (2)
  1. PREVACID [Suspect]
     Indication: GASTROOESOPHAGEAL REFLUX DISEASE
     Dosage: 30 MG QD ORAL
     Route: 048
     Dates: start: 20051001
  2. CILOSTAZOL [Suspect]
     Indication: POOR PERIPHERAL CIRCULATION
     Dates: start: 20040101, end: 20060111

REACTIONS (1)
  - TACHYCARDIA [None]
